FAERS Safety Report 8981073 (Version 3)
Quarter: 2013Q1

REPORT INFORMATION
  Report Type: Spontaneous
  Country: JP (occurrence: JP)
  Receive Date: 20121221
  Receipt Date: 20130102
  Transmission Date: 20140127
  Serious: Yes (Hospitalization, Other)
  Sender: FDA-Public Use
  Company Number: JP-PFIZER INC-2012325001

PATIENT
  Age: 72 Year
  Sex: Female

DRUGS (5)
  1. SOLANAX [Suspect]
     Dosage: 0.8 MG (2 TABLETS), 1X/DAY, AT BEDTIME
     Route: 048
     Dates: start: 201112, end: 20121218
  2. ATARAX-P [Suspect]
     Dosage: UNK
     Route: 048
  3. DEPAS [Suspect]
     Route: 048
  4. ROHYPNOL [Suspect]
     Dosage: UNK
     Route: 048
  5. TULOBUTEROL [Concomitant]
     Dosage: UNK

REACTIONS (3)
  - Fracture [Unknown]
  - Hallucination [Unknown]
  - Dizziness [Recovered/Resolved]
